FAERS Safety Report 5470971-3 (Version None)
Quarter: 2007Q3

REPORT INFORMATION
  Report Type: 
  Country: None (occurrence: None)
  Receive Date: 20070928
  Receipt Date: 20070919
  Transmission Date: 20080115
  Serious: Yes (Hospitalization)
  Sender: FDA-Public Use
  Company Number: DE-AMGEN-US244571

PATIENT
  Age: 65 Year
  Sex: Female

DRUGS (10)
  1. ENBREL [Suspect]
     Indication: RHEUMATOID ARTHRITIS
     Route: 058
     Dates: start: 20040601, end: 20060301
  2. ENBREL [Suspect]
     Route: 058
     Dates: start: 20060701, end: 20070101
  3. ENBREL [Suspect]
     Route: 058
     Dates: start: 20070101
  4. ARAVA [Suspect]
     Indication: RHEUMATOID ARTHRITIS
     Route: 048
     Dates: start: 20040901, end: 20041001
  5. ARAVA [Suspect]
     Route: 048
     Dates: start: 20041101
  6. PREDNISOLONE [Concomitant]
     Route: 048
  7. AMITRIPTYLINE HCL [Concomitant]
  8. VIGANTOLETTEN [Concomitant]
  9. LEVOTHYROXINE SODIUM [Concomitant]
  10. CALCIUM [Concomitant]

REACTIONS (2)
  - ARTHRODESIS [None]
  - BURSITIS [None]
